FAERS Safety Report 6865519-2 (Version None)
Quarter: 2010Q3

REPORT INFORMATION
  Report Type: 
  Country: None (occurrence: None)
  Receive Date: 20100721
  Receipt Date: 20080425
  Transmission Date: 20110219
  Serious: No
  Sender: FDA-Public Use
  Company Number: US-PFIZER INC-2008037120

PATIENT
  Sex: Female
  Weight: 77.3 kg

DRUGS (6)
  1. CHANTIX [Suspect]
     Indication: SMOKING CESSATION THERAPY
     Dates: start: 20080401, end: 20080401
  2. HYDROCHLOROTHIAZIDE [Concomitant]
  3. OXYCONTIN [Concomitant]
     Indication: PAIN
  4. ENALAPRIL MALEATE [Concomitant]
     Indication: HYPERTENSION
  5. NORVASC [Concomitant]
     Indication: HYPERTENSION
  6. MONTELUKAST SODIUM [Concomitant]

REACTIONS (5)
  - APATHY [None]
  - DRUG SCREEN POSITIVE [None]
  - NAUSEA [None]
  - SOMNOLENCE [None]
  - VOMITING [None]
